FAERS Safety Report 9922795 (Version 2)
Quarter: 2014Q1

REPORT INFORMATION
  Report Type: Spontaneous
  Country: FR (occurrence: FR)
  Receive Date: 20140225
  Receipt Date: 20140225
  Transmission Date: 20141002
  Serious: Yes (Other)
  Sender: FDA-Public Use
  Company Number: FR-ABBVIE-13P-056-1096979-00

PATIENT
  Age: 29 Year
  Sex: Female

DRUGS (3)
  1. HUMIRA [Suspect]
     Indication: ANKYLOSING SPONDYLITIS
     Dosage: 1 INJECTION
     Dates: start: 20130515, end: 20130515
  2. APRANAX [Concomitant]
     Indication: PRODUCT USED FOR UNKNOWN INDICATION
  3. NSAIDS (NOS) [Concomitant]
     Indication: PRODUCT USED FOR UNKNOWN INDICATION

REACTIONS (9)
  - Dermatitis allergic [Recovered/Resolved]
  - Pruritus generalised [Recovered/Resolved]
  - Thrombocytopenia [Unknown]
  - Hepatocellular injury [Unknown]
  - Cholestasis [Unknown]
  - Dyspepsia [Unknown]
  - Diarrhoea [Unknown]
  - Cough [Recovered/Resolved]
  - Generalised erythema [Recovered/Resolved]
